FAERS Safety Report 12631501 (Version 2)
Quarter: 2016Q3

REPORT INFORMATION
  Report Type: Spontaneous
  Country: US (occurrence: US)
  Receive Date: 20160808
  Receipt Date: 20160808
  Transmission Date: 20161109
  Serious: No
  Sender: FDA-Public Use
  Company Number: US-BEH-2015054362

PATIENT
  Sex: Female
  Weight: 121 kg

DRUGS (16)
  1. VITAMIN D [Concomitant]
     Active Substance: CHOLECALCIFEROL
  2. MUPIROCIN OINTMENT [Concomitant]
     Active Substance: MUPIROCIN
  3. DIPHENHYDRAMINE. [Concomitant]
     Active Substance: DIPHENHYDRAMINE
     Indication: ANAPHYLACTIC REACTION
  4. LIDOCAINE. [Concomitant]
     Active Substance: LIDOCAINE
  5. GABAPENTIN. [Concomitant]
     Active Substance: GABAPENTIN
  6. EPIPEN [Concomitant]
     Active Substance: EPINEPHRINE
     Indication: ANAPHYLACTIC REACTION
  7. VENOFER [Concomitant]
     Active Substance: IRON SUCROSE
  8. ACETAMINOPHEN. [Concomitant]
     Active Substance: ACETAMINOPHEN
  9. BARIATRIC MULTIVITAMIN [Concomitant]
  10. PROTONIX [Concomitant]
     Active Substance: PANTOPRAZOLE SODIUM
  11. ADDERRAL [Concomitant]
  12. HIZENTRA [Suspect]
     Active Substance: HUMAN IMMUNOGLOBULIN G
     Indication: IMMUNODEFICIENCY COMMON VARIABLE
     Route: 058
  13. ZINC [Concomitant]
     Active Substance: ZINC\ZINC CHLORIDE
  14. PROZAC [Concomitant]
     Active Substance: FLUOXETINE HYDROCHLORIDE
  15. VITAMIN B12 [Concomitant]
     Active Substance: CYANOCOBALAMIN
  16. HIZENTRA [Suspect]
     Active Substance: HUMAN IMMUNOGLOBULIN G
     Route: 058

REACTIONS (5)
  - Injection site erythema [Recovered/Resolved]
  - Skin exfoliation [Recovered/Resolved]
  - Injection site swelling [Recovered/Resolved]
  - Infusion site reaction [Recovered/Resolved]
  - Nausea [Recovered/Resolved]
